FAERS Safety Report 4389484-5 (Version None)
Quarter: 2004Q2

REPORT INFORMATION
  Report Type: 
  Country: None (occurrence: None)
  Receive Date: 20040628
  Receipt Date: 20040618
  Transmission Date: 20050107
  Serious: Yes (Other)
  Sender: FDA-Public Use
  Company Number: BE-JNJFOC-20040604960

PATIENT
  Age: 12 Month
  Sex: Male

DRUGS (1)
  1. PROPULSID [Suspect]
     Indication: GASTROOESOPHAGEAL REFLUX DISEASE
     Dosage: 1.8 MG, 3 IN 1 DAY ORAL
     Route: 048
     Dates: start: 20031201, end: 20040127

REACTIONS (1)
  - BONE DISORDER [None]
